FAERS Safety Report 6398559-0 (Version None)
Quarter: 2009Q4

REPORT INFORMATION
  Report Type: 
  Country: None (occurrence: None)
  Receive Date: 20091013
  Receipt Date: 20091009
  Transmission Date: 20100525
  Serious: Yes (Death)
  Sender: FDA-Public Use
  Company Number: BR-PFIZER INC-2009198628

PATIENT

DRUGS (1)
  1. CELSENTRI [Suspect]
     Dosage: UNK
     Dates: start: 20080101

REACTIONS (1)
  - DEATH [None]
